FAERS Safety Report 13571718 (Version 1)
Quarter: 2017Q2

REPORT INFORMATION
  Report Type: Spontaneous
  Country: DK (occurrence: DK)
  Receive Date: 20170523
  Receipt Date: 20170523
  Transmission Date: 20170830
  Serious: Yes (Hospitalization)
  Sender: FDA-Public Use
  Company Number: DK-ORION CORPORATION ORION PHARMA-17_00002355

PATIENT
  Age: 84 Year
  Sex: Female

DRUGS (10)
  1. FUROSEMID ORIFARM [Suspect]
     Active Substance: FUROSEMIDE
     Indication: DIURETIC THERAPY
     Dosage: STRENGTH: 40 MG
     Route: 065
  2. FUROSEMID ORIFARM [Suspect]
     Active Substance: FUROSEMIDE
     Route: 065
  3. LANSOPRAZOL [Concomitant]
     Active Substance: LANSOPRAZOLE
     Route: 065
  4. MAGNESIUMHYDROXID [Concomitant]
     Route: 065
  5. PROLIA [Concomitant]
     Active Substance: DENOSUMAB
     Route: 065
  6. SPIRON (SPIRONOLACTONE) [Suspect]
     Active Substance: SPIRONOLACTONE
     Indication: DIURETIC THERAPY
     Dosage: STRENGTH: 100 MG
     Route: 065
  7. SPIRON (SPIRONOLACTONE) [Suspect]
     Active Substance: SPIRONOLACTONE
     Dosage: STRENGTH: 100 MG
     Route: 065
     Dates: start: 20170503, end: 20170504
  8. MIANSERIN [Concomitant]
     Active Substance: MIANSERIN
     Route: 065
  9. SPIRON (SPIRONOLACTONE) [Suspect]
     Active Substance: SPIRONOLACTONE
     Route: 065
     Dates: start: 20170505
  10. PAMOL [Concomitant]
     Active Substance: ACETAMINOPHEN
     Route: 065

REACTIONS (2)
  - Hyponatraemia [Not Recovered/Not Resolved]
  - Inappropriate antidiuretic hormone secretion [Unknown]

NARRATIVE: CASE EVENT DATE: 201704
